FAERS Safety Report 17682995 (Version 1)
Quarter: 2020Q2

REPORT INFORMATION
  Report Type: Spontaneous
  Country: JP (occurrence: JP)
  Receive Date: 20200420
  Receipt Date: 20200420
  Transmission Date: 20200714
  Serious: Yes (Hospitalization, Other)
  Sender: FDA-Public Use
  Company Number: JP-BRISTOL-MYERS SQUIBB COMPANY-BMS-2020-031493

PATIENT
  Age: 64 Year
  Sex: Male

DRUGS (2)
  1. HYDREA [Suspect]
     Active Substance: HYDROXYUREA
     Indication: CHRONIC MYELOID LEUKAEMIA
     Dosage: UNK
     Route: 065
     Dates: end: 201809
  2. MELPHALAN. [Suspect]
     Active Substance: MELPHALAN
     Indication: WHITE BLOOD CELL COUNT INCREASED
     Dosage: UNK
     Route: 065
     Dates: start: 201809

REACTIONS (3)
  - Mediastinal abscess [Unknown]
  - Oral fungal infection [Unknown]
  - Aspergillus infection [Unknown]
